FAERS Safety Report 11425230 (Version 1)
Quarter: 2015Q3

REPORT INFORMATION
  Report Type: Spontaneous
  Country: IT (occurrence: IT)
  Receive Date: 20150827
  Receipt Date: 20150827
  Transmission Date: 20151125
  Serious: Yes (Hospitalization)
  Sender: FDA-Public Use
  Company Number: IT-MYLANLABS-2015M1028804

PATIENT

DRUGS (2)
  1. AMIODARONE [Concomitant]
     Active Substance: AMIODARONE
     Indication: PRODUCT USED FOR UNKNOWN INDICATION
     Route: 065
  2. WARFARIN [Suspect]
     Active Substance: WARFARIN
     Indication: THROMBOSIS PROPHYLAXIS
     Route: 048

REACTIONS (7)
  - Coagulation time prolonged [Recovering/Resolving]
  - Epistaxis [Recovered/Resolved]
  - Atrioventricular block complete [Unknown]
  - Syncope [Recovering/Resolving]
  - Bundle branch block left [Unknown]
  - Bradyarrhythmia [Unknown]
  - Head injury [Unknown]
